APPROVED DRUG PRODUCT: NIACIN
Active Ingredient: NIACIN
Strength: 750MG
Dosage Form/Route: TABLET, EXTENDED RELEASE;ORAL
Application: A209236 | Product #002 | TE Code: AB
Applicant: AUROBINDO PHARMA LTD
Approved: Feb 1, 2018 | RLD: No | RS: No | Type: RX